FAERS Safety Report 5162465-X (Version None)
Quarter: 2006Q4

REPORT INFORMATION
  Report Type: 
  Country: None (occurrence: None)
  Receive Date: 20061129
  Receipt Date: 20061129
  Transmission Date: 20070319
  Serious: Yes (Other)
  Sender: FDA-Public Use
  Company Number: None

PATIENT
  Sex: Female
  Weight: 70.7611 kg

DRUGS (2)
  1. ATOVAQUONE [Suspect]
     Indication: PNEUMOCYSTIS JIROVECI PNEUMONIA
     Dosage: 1 TSP BID PO
     Route: 048
     Dates: start: 20060811, end: 20061018
  2. ATOVAQUONE [Suspect]
     Indication: PROPHYLAXIS
     Dosage: 1 TSP BID PO
     Route: 048
     Dates: start: 20060811, end: 20061018

REACTIONS (2)
  - JAUNDICE [None]
  - LIVER FUNCTION TEST ABNORMAL [None]
